FAERS Safety Report 9502086 (Version 1)
Quarter: 2013Q3

REPORT INFORMATION
  Report Type: Spontaneous
  Country: US (occurrence: US)
  Receive Date: 20130905
  Receipt Date: 20130905
  Transmission Date: 20140515
  Serious: Yes (Other)
  Sender: FDA-Public Use
  Company Number: US-RB-057964-13

PATIENT
  Age: 56 Year
  Sex: Male

DRUGS (2)
  1. BUPRENORPHINE GENERIC [Suspect]
     Indication: PAIN
     Route: 060
     Dates: start: 2011, end: 2012
  2. BUPRENORPHINE GENERIC [Suspect]
     Route: 060

REACTIONS (2)
  - Off label use [Not Recovered/Not Resolved]
  - Platelet count decreased [Not Recovered/Not Resolved]
